FAERS Safety Report 18784551 (Version 1)
Quarter: 2021Q1

REPORT INFORMATION
  Report Type: Spontaneous
  Country: US (occurrence: US)
  Receive Date: 20210126
  Receipt Date: 20210126
  Transmission Date: 20210419
  Serious: No
  Sender: FDA-Public Use
  Company Number: US-ALLERGAN-2011095US

PATIENT
  Sex: Female

DRUGS (3)
  1. FAMOTIDINE. [Concomitant]
     Active Substance: FAMOTIDINE
     Dosage: UNK, QPM
  2. RESTASIS [Suspect]
     Active Substance: CYCLOSPORINE
     Indication: DRY EYE
     Dosage: 4 GTT, BID (IN AM AND PM)
     Route: 047
     Dates: end: 201910
  3. PEPCID [Concomitant]
     Active Substance: FAMOTIDINE
     Dosage: 1 DF, QD

REACTIONS (7)
  - Inability to afford medication [Unknown]
  - Dry eye [Not Recovered/Not Resolved]
  - Product dose omission issue [Unknown]
  - Dry mouth [Recovered/Resolved]
  - Incorrect dose administered [Unknown]
  - Blepharitis [Not Recovered/Not Resolved]
  - Rosacea [Not Recovered/Not Resolved]
